FAERS Safety Report 9644231 (Version 1)
Quarter: 2013Q4

REPORT INFORMATION
  Report Type: Spontaneous
  Country: US (occurrence: US)
  Receive Date: 20131024
  Receipt Date: 20131024
  Transmission Date: 20140711
  Serious: No
  Sender: FDA-Public Use
  Company Number: US-009507513-1310USA007511

PATIENT
  Sex: Female

DRUGS (1)
  1. ZETIA [Suspect]
     Dosage: 10 MG, QD
     Route: 048
     Dates: start: 2009

REACTIONS (2)
  - Headache [Not Recovered/Not Resolved]
  - Abdominal discomfort [Not Recovered/Not Resolved]
